FAERS Safety Report 18255899 (Version 1)
Quarter: 2020Q3

REPORT INFORMATION
  Report Type: Spontaneous
  Country: US (occurrence: US)
  Receive Date: 20200910
  Receipt Date: 20200910
  Transmission Date: 20201103
  Serious: Yes (Hospitalization, Disabling, Other)
  Sender: FDA-Public Use
  Company Number: US-NOVOPROD-750981

PATIENT
  Sex: Female

DRUGS (2)
  1. TRESIBA [Suspect]
     Active Substance: INSULIN DEGLUDEC
     Indication: PRODUCT USED FOR UNKNOWN INDICATION
     Dosage: UNK
     Route: 058
  2. NOVOLOG [Suspect]
     Active Substance: INSULIN ASPART
     Indication: PRODUCT USED FOR UNKNOWN INDICATION
     Dosage: UNK
     Route: 058

REACTIONS (10)
  - Ill-defined disorder [Unknown]
  - Blister [Unknown]
  - Uterine cancer [Unknown]
  - Drug hypersensitivity [Unknown]
  - Disability [Unknown]
  - Illness [Unknown]
  - Asthenia [Unknown]
  - Insulin resistance [Unknown]
  - Colectomy [Unknown]
  - Product storage error [Unknown]
